FAERS Safety Report 9486188 (Version 1)
Quarter: 2013Q3

REPORT INFORMATION
  Report Type: Spontaneous
  Country: US (occurrence: None)
  Receive Date: 20130827
  Receipt Date: 20130827
  Transmission Date: 20140515
  Serious: Yes (Death)
  Sender: FDA-Public Use
  Company Number: 163-POMAL-13082709

PATIENT
  Age: 61 Year
  Sex: Female

DRUGS (10)
  1. POMALYST [Suspect]
     Indication: PLASMA CELL MYELOMA
     Route: 048
     Dates: start: 201306
  2. OXYCONTIN(OXYCODONE HYDROCHLORIDE)(UNKNOWN) [Concomitant]
  3. OXYCODONE HCL(OXYCODONE HYDROCHLORIDE)(UNKNOWN) [Concomitant]
  4. ASPIRIN(ACETYLSALICYLIC ACID)(UNKNOWN) [Concomitant]
  5. PROCHLORPERAZINE MALEATE(PROCHLORPERAZINE MALEATE)(UNKNOWN) [Concomitant]
  6. ZOFRAN(ONDANSETRON HYDROCHLORIDE)(UNKNOWN) [Concomitant]
  7. PROTONIX(UNKNOWN) [Concomitant]
  8. ACYCLOVIR(ACICLOVIR)(UNKNOWN) [Concomitant]
  9. FOLIC ACID(FOLIC ACID)(UNKNOWN) [Concomitant]
  10. VITAMIN D(ERGOCALCIFEROL)(UNKNOWN) [Concomitant]

REACTIONS (1)
  - Death [None]
